FAERS Safety Report 9723226 (Version 1)
Quarter: 2013Q4

REPORT INFORMATION
  Report Type: Spontaneous
  Country: US (occurrence: US)
  Receive Date: 20131202
  Receipt Date: 20131202
  Transmission Date: 20140711
  Serious: Yes (Other)
  Sender: FDA-Public Use
  Company Number: US-GILEAD-2008-0018231

PATIENT
  Age: 49 Year
  Sex: Male

DRUGS (9)
  1. TRUVADA [Suspect]
     Indication: HIV INFECTION
     Dates: start: 200703, end: 20080807
  2. DARUNAVIR [Concomitant]
     Dates: end: 20080807
  3. DARUNAVIR [Concomitant]
     Dates: start: 20080823
  4. SUSTIVA [Concomitant]
     Dates: end: 20080807
  5. SUSTIVA [Concomitant]
     Dates: start: 20080823
  6. RITONAVIR [Concomitant]
     Dates: end: 20080807
  7. RITONAVIR [Concomitant]
     Dates: start: 20080823
  8. LISINOPRIL [Concomitant]
     Indication: HYPERTENSION
  9. DIOVAN [Concomitant]
     Indication: HYPERTENSION

REACTIONS (1)
  - Renal failure acute [Unknown]
